FAERS Safety Report 13739575 (Version 1)
Quarter: 2017Q3

REPORT INFORMATION
  Report Type: Spontaneous
  Country: BR (occurrence: BR)
  Receive Date: 20170710
  Receipt Date: 20170710
  Transmission Date: 20171127
  Serious: Yes (Other)
  Sender: FDA-Public Use
  Company Number: PHHY2013BR067919

PATIENT
  Age: 90 Year
  Sex: Female

DRUGS (3)
  1. HYDERGINE [Suspect]
     Active Substance: ERGOLOID MESYLATES
     Dosage: 4 DF (1MG), DAILY
     Route: 048
     Dates: start: 20130627
  2. ISKETAM [Suspect]
     Active Substance: DIHYDROERGOCRISTINE MESYLATE\PIRACETAM
     Dosage: 1 DF, DAILY
     Route: 048
  3. HYDERGINE [Suspect]
     Active Substance: ERGOLOID MESYLATES
     Dosage: 1 DF (4.5MG), DAILY
     Route: 048
     Dates: start: 1999

REACTIONS (3)
  - Confusional state [Not Recovered/Not Resolved]
  - Incoherent [Not Recovered/Not Resolved]
  - Poor quality sleep [Not Recovered/Not Resolved]
